FAERS Safety Report 25467954 (Version 1)
Quarter: 2025Q2

REPORT INFORMATION
  Report Type: Report from Study
  Country: MY (occurrence: MY)
  Receive Date: 20250623
  Receipt Date: 20250623
  Transmission Date: 20250716
  Serious: Yes (Other)
  Sender: ROCHE
  Company Number: MY-ROCHE-10000314911

PATIENT

DRUGS (1)
  1. TOCILIZUMAB [Suspect]
     Active Substance: TOCILIZUMAB
     Indication: COVID-19
     Route: 065

REACTIONS (7)
  - Renal impairment [Unknown]
  - Off label use [Unknown]
  - Hepatic function abnormal [Unknown]
  - Bacteraemia [Unknown]
  - Pneumonia [Unknown]
  - Urinary tract infection [Unknown]
  - Infection [Unknown]
